FAERS Safety Report 10441187 (Version 1)
Quarter: 2014Q3

REPORT INFORMATION
  Report Type: Spontaneous
  Country: US (occurrence: None)
  Receive Date: 20140905
  Receipt Date: 20140905
  Transmission Date: 20150326
  Serious: Yes (Death, Other)
  Sender: FDA-Public Use
  Company Number: ADR-2014-01593

PATIENT
  Sex: Female

DRUGS (1)
  1. BACLOFEN INTRATHECAL [Suspect]
     Active Substance: BACLOFEN

REACTIONS (4)
  - Hypotonia [None]
  - Asthenia [None]
  - Surgery [None]
  - Anaesthetic complication foetal [None]
